FAERS Safety Report 8923114 (Version 1)
Quarter: 2012Q4

REPORT INFORMATION
  Report Type: 
  Country: US (occurrence: US)
  Receive Date: 20121123
  Receipt Date: 20121123
  Transmission Date: 20130627
  Serious: No
  Sender: FDA-Public Use
  Company Number: US-JNJFOC-20121111438

PATIENT

DRUGS (1)
  1. INVEGA SUSTENNA [Suspect]
     Indication: ACCIDENTAL EXPOSURE TO PRODUCT
     Route: 030

REACTIONS (2)
  - Accidental exposure to product [Unknown]
  - Device leakage [Unknown]
